FAERS Safety Report 6474247-7 (Version None)
Quarter: 2009Q4

REPORT INFORMATION
  Report Type: 
  Country: None (occurrence: None)
  Receive Date: 20091204
  Receipt Date: 20091125
  Transmission Date: 20100525
  Serious: Yes (Hospitalization)
  Sender: FDA-Public Use
  Company Number: PHHY2009CY51575

PATIENT
  Sex: Female

DRUGS (5)
  1. RASILEZ [Suspect]
  2. ENALAPRIL [Concomitant]
     Indication: BLOOD PRESSURE INADEQUATELY CONTROLLED
  3. HYDROCHLOROTHIAZIDE [Concomitant]
     Indication: BLOOD PRESSURE INADEQUATELY CONTROLLED
  4. ATENOLOL [Concomitant]
     Indication: BLOOD PRESSURE INADEQUATELY CONTROLLED
  5. SEROXAT ^CIBA-GEIGY^ [Concomitant]

REACTIONS (1)
  - HYPONATRAEMIA [None]
